FAERS Safety Report 16309763 (Version 2)
Quarter: 2019Q2

REPORT INFORMATION
  Report Type: Spontaneous
  Country: US (occurrence: US)
  Receive Date: 20190514
  Receipt Date: 20190516
  Transmission Date: 20190711
  Serious: Yes (Hospitalization)
  Sender: FDA-Public Use
  Company Number: US-PFIZER INC-2019203946

PATIENT
  Age: 19 Year
  Sex: Female
  Weight: 60 kg

DRUGS (15)
  1. FENTANYL CITRATE. [Suspect]
     Active Substance: FENTANYL CITRATE
     Dosage: 0.05 MG, UNK
     Route: 040
  2. FENTANYL CITRATE. [Suspect]
     Active Substance: FENTANYL CITRATE
     Dosage: 0.30 MG, UNK
  3. METHYLDOPA. [Suspect]
     Active Substance: METHYLDOPA
     Indication: GESTATIONAL HYPERTENSION
     Dosage: 1 G, DAILY
  4. THIOPENTAL [Concomitant]
     Active Substance: THIOPENTAL
     Indication: ANAESTHESIA
     Dosage: 300 MG, UNK
  5. ATROPINE SULFATE. [Suspect]
     Active Substance: ATROPINE SULFATE
     Dosage: 1 MG, UNK
  6. NEOSTIGMINE. [Suspect]
     Active Substance: NEOSTIGMINE METHYLSULFATE
     Dosage: 2 MG, UNK
  7. ATRACURIUM [Concomitant]
     Active Substance: ATRACURIUM
     Indication: ANAESTHESIA
     Dosage: 5 MG, UNK
  8. ATRACURIUM [Concomitant]
     Active Substance: ATRACURIUM
     Dosage: 30 MG, UNK
     Route: 040
  9. SUCCINYLCHOLINE BROMIDE [Concomitant]
     Active Substance: SUXAMETHONIUM BROMIDE
     Indication: ANAESTHESIA
     Dosage: 100 MG, UNK
  10. OXYTOCIN. [Concomitant]
     Active Substance: OXYTOCIN
     Dosage: 5 IU, UNK
     Route: 042
  11. FENTANYL CITRATE. [Suspect]
     Active Substance: FENTANYL CITRATE
     Dosage: 0.05 MG, UNK
     Route: 040
  12. METHYLERGOMETRINE [Suspect]
     Active Substance: METHYLERGONOVINE MALEATE
     Dosage: 0.20 MG, UNK
     Route: 030
  13. METHYLDOPA. [Suspect]
     Active Substance: METHYLDOPA
     Dosage: 500 MG, UNK (3 HOURS BEFORE ONDUCATION)
     Route: 048
  14. ATRACURIUM [Concomitant]
     Active Substance: ATRACURIUM
     Dosage: 10 MG, UNK
     Route: 040
  15. DROPERIDOL. [Concomitant]
     Active Substance: DROPERIDOL
     Dosage: 5 MG, UNK

REACTIONS (2)
  - Sinus bradycardia [Unknown]
  - Cardiac arrest [Unknown]
